FAERS Safety Report 8218830-7 (Version None)
Quarter: 2012Q1

REPORT INFORMATION
  Report Type: 
  Country: None (occurrence: None)
  Receive Date: 20120319
  Receipt Date: 20120313
  Transmission Date: 20120608
  Serious: Yes (Other)
  Sender: FDA-Public Use
  Company Number: PHEH2012US005748

PATIENT
  Sex: Female

DRUGS (1)
  1. RECLAST [Suspect]
     Dosage: UNK
     Route: 042

REACTIONS (5)
  - MYALGIA [None]
  - INFLUENZA [None]
  - ARTHRALGIA [None]
  - FOOT FRACTURE [None]
  - SUPRAVENTRICULAR EXTRASYSTOLES [None]
